FAERS Safety Report 8088498-1 (Version None)
Quarter: 2012Q1

REPORT INFORMATION
  Report Type: 
  Country: None (occurrence: None)
  Receive Date: 20120128
  Receipt Date: 20110415
  Transmission Date: 20120608
  Serious: No
  Sender: FDA-Public Use
  Company Number: US-ABBOTT-11P-163-0719926-00

PATIENT
  Sex: Female
  Weight: 63.56 kg

DRUGS (1)
  1. HUMIRA [Suspect]
     Indication: COLITIS ULCERATIVE
     Dosage: 160MG ON DAY ONE; 4 IN 1 DAY
     Route: 058
     Dates: start: 20110412, end: 20110412

REACTIONS (5)
  - OEDEMA MUCOSAL [None]
  - ORAL HERPES [None]
  - SENSORY DISTURBANCE [None]
  - DYSARTHRIA [None]
  - DRY MOUTH [None]
